FAERS Safety Report 8195865-4 (Version None)
Quarter: 2012Q1

REPORT INFORMATION
  Report Type: 
  Country: None (occurrence: None)
  Receive Date: 20120308
  Receipt Date: 20120228
  Transmission Date: 20120608
  Serious: Yes (Hospitalization)
  Sender: FDA-Public Use
  Company Number: AU-FRI-1000028619

PATIENT
  Age: 44 Year
  Sex: Female

DRUGS (5)
  1. ESCITALOPRAM [Suspect]
     Indication: DEPRESSION
     Dosage: 20 MG
  2. RABEPRAZOLE SODIUM [Concomitant]
  3. TOPAMAX [Suspect]
  4. LEVOTHYROXINE SODIUM [Concomitant]
  5. SEROQUEL [Suspect]

REACTIONS (3)
  - ELECTROCARDIOGRAM QT PROLONGED [None]
  - SINUS BRADYCARDIA [None]
  - CIRCULATORY COLLAPSE [None]
